FAERS Safety Report 10217654 (Version 1)
Quarter: 2014Q2

REPORT INFORMATION
  Report Type: Spontaneous
  Country: US (occurrence: US)
  Receive Date: 20140604
  Receipt Date: 20140604
  Transmission Date: 20141212
  Serious: No
  Sender: FDA-Public Use
  Company Number: US-GILEAD-2013-0081274

PATIENT
  Age: 27 Year
  Sex: Female

DRUGS (1)
  1. VIREAD [Suspect]
     Indication: CHRONIC HEPATITIS B
     Dosage: 300 MG, QD
     Route: 048

REACTIONS (1)
  - Pregnancy [Recovered/Resolved]
